FAERS Safety Report 7068136-7 (Version None)
Quarter: 2010Q4

REPORT INFORMATION
  Report Type: 
  Country: None (occurrence: None)
  Receive Date: 20101028
  Receipt Date: 20101020
  Transmission Date: 20110411
  Serious: Yes (Hospitalization)
  Sender: FDA-Public Use
  Company Number: PHHY2010US70794

PATIENT
  Sex: Female

DRUGS (4)
  1. TEKTURNA [Suspect]
     Dosage: 300 QD
     Route: 048
  2. CLONIDINE [Concomitant]
  3. COREG [Concomitant]
  4. HYDRALAZINE [Concomitant]

REACTIONS (3)
  - CEREBROVASCULAR ACCIDENT [None]
  - MALIGNANT HYPERTENSION [None]
  - RENAL FAILURE [None]
